FAERS Safety Report 7561918-4 (Version None)
Quarter: 2011Q2

REPORT INFORMATION
  Report Type: 
  Country: None (occurrence: None)
  Receive Date: 20110621
  Receipt Date: 20110610
  Transmission Date: 20111010
  Serious: Yes (Other)
  Sender: FDA-Public Use
  Company Number: US-ROCHE-768840

PATIENT
  Sex: Male
  Weight: 63.5 kg

DRUGS (2)
  1. SOTRET [Suspect]
     Indication: ACNE
     Route: 065
     Dates: start: 20050501, end: 20051201
  2. ACCUTANE [Suspect]
     Indication: ACNE
     Route: 048
     Dates: start: 19850901, end: 19860120

REACTIONS (18)
  - INFLAMMATORY BOWEL DISEASE [None]
  - OESOPHAGEAL STENOSIS [None]
  - HIATUS HERNIA [None]
  - ANXIETY [None]
  - POLYP [None]
  - SUICIDAL IDEATION [None]
  - DEPRESSION [None]
  - EROSIVE DUODENITIS [None]
  - GASTROOESOPHAGEAL REFLUX DISEASE [None]
  - GASTROINTESTINAL DISORDER [None]
  - BLOOD TRIGLYCERIDES INCREASED [None]
  - BLOOD CHOLESTEROL INCREASED [None]
  - EOSINOPHILIC OESOPHAGITIS [None]
  - ACQUIRED OESOPHAGEAL WEB [None]
  - OESOPHAGITIS [None]
  - ANAL FISSURE [None]
  - COLITIS ULCERATIVE [None]
  - EMOTIONAL DISTRESS [None]
